FAERS Safety Report 20070417 (Version 1)
Quarter: 2021Q4

REPORT INFORMATION
  Report Type: Report from Study
  Country: AR (occurrence: AR)
  Receive Date: 20211115
  Receipt Date: 20211115
  Transmission Date: 20220304
  Serious: Yes (Other)
  Sender: FDA-Public Use
  Company Number: AR-NOVARTISPH-NVSC2021AR164301

PATIENT
  Age: 58 Year
  Sex: Female

DRUGS (2)
  1. GILENYA [Suspect]
     Active Substance: FINGOLIMOD HYDROCHLORIDE
     Indication: Relapsing multiple sclerosis
     Dosage: 0.5 MG, QD
     Route: 048
     Dates: start: 20150929
  2. GILENYA [Suspect]
     Active Substance: FINGOLIMOD HYDROCHLORIDE
     Indication: Multiple sclerosis

REACTIONS (4)
  - Immunodeficiency [Unknown]
  - Fear [Unknown]
  - Vaccination failure [Unknown]
  - Pain [Unknown]

NARRATIVE: CASE EVENT DATE: 20210705
